FAERS Safety Report 4907604-8 (Version None)
Quarter: 2006Q1

REPORT INFORMATION
  Report Type: 
  Country: None (occurrence: None)
  Receive Date: 20060210
  Receipt Date: 20040427
  Transmission Date: 20060701
  Serious: Yes (Hospitalization)
  Sender: FDA-Public Use
  Company Number: DE-ABBOTT-04P-062-0258984-00

PATIENT
  Sex: Female
  Weight: 58 kg

DRUGS (5)
  1. HUMIRA [Suspect]
     Indication: RHEUMATOID ARTHRITIS
     Dosage: 40 MILLIGRAM
     Route: 058
     Dates: start: 20031017
  2. ARELIX ACE [Concomitant]
     Indication: HYPERTENSION
  3. ISOPROMETHAZINE HYDROCHLORIDE [Concomitant]
     Indication: DEPRESSION
  4. AMITRIPTYLINE HCL [Concomitant]
     Indication: DEPRESSION
  5. PANTOPRAZOLE SODIUM [Concomitant]
     Indication: PROPHYLAXIS AGAINST GASTROINTESTINAL ULCER

REACTIONS (2)
  - DEAFNESS NEUROSENSORY [None]
  - DIZZINESS [None]
